FAERS Safety Report 5852998-2 (Version None)
Quarter: 2008Q3

REPORT INFORMATION
  Report Type: 
  Country: None (occurrence: None)
  Receive Date: 20080821
  Receipt Date: 20080818
  Transmission Date: 20090109
  Serious: Yes (Death, Hospitalization)
  Sender: FDA-Public Use
  Company Number: GB-WYE-G01992708

PATIENT
  Sex: Male

DRUGS (2)
  1. GEMTUZUMAB OZOGAMICIN [Suspect]
     Dosage: UNKNOWN
     Dates: start: 20080618
  2. DAUNORUBICIN HCL [Suspect]
     Dosage: UNKNOWN
     Dates: start: 20080618

REACTIONS (2)
  - FUNGAL INFECTION [None]
  - PANCYTOPENIA [None]
